FAERS Safety Report 8410451-6 (Version None)
Quarter: 2012Q2

REPORT INFORMATION
  Report Type: 
  Country: None (occurrence: None)
  Receive Date: 20120529
  Receipt Date: 20000803
  Transmission Date: 20120825
  Serious: Yes (Death, Hospitalization)
  Sender: FDA-Public Use
  Company Number: 02100-USA-00-0256

PATIENT
  Age: 77 Year
  Sex: Female

DRUGS (1)
  1. PLETAL [Suspect]
     Dosage: 100 MG, BID, ORAL
     Route: 048
     Dates: start: 20000701, end: 20000715

REACTIONS (1)
  - PANCREATITIS [None]
